FAERS Safety Report 9348862 (Version 1)
Quarter: 2013Q2

REPORT INFORMATION
  Report Type: Spontaneous
  Country: DE (occurrence: DE)
  Receive Date: 20130614
  Receipt Date: 20130614
  Transmission Date: 20140414
  Serious: Yes (Other)
  Sender: FDA-Public Use
  Company Number: DE-TEVA-409793GER

PATIENT
  Age: 53 Year
  Sex: Male

DRUGS (6)
  1. GEMCITABINE [Suspect]
     Indication: DUCTAL ADENOCARCINOMA OF PANCREAS
     Dates: start: 201210, end: 20130325
  2. MCP-TROPFEN [Concomitant]
     Dosage: 60 GTT DAILY;
  3. TAVOR [Concomitant]
     Dosage: 1 MILLIGRAM DAILY;
     Route: 048
  4. PARACODIN [Concomitant]
     Dosage: 45 GTT DAILY;
     Route: 048
  5. HCT [Concomitant]
     Dosage: 25 MILLIGRAM DAILY;
  6. ALDACTONE [Concomitant]
     Dosage: 100 MILLIGRAM DAILY;
     Route: 048

REACTIONS (5)
  - Pericardial effusion [Recovering/Resolving]
  - Capillary leak syndrome [Recovering/Resolving]
  - Pleural effusion [Recovering/Resolving]
  - Abdominal pain [Recovering/Resolving]
  - Vomiting [Recovering/Resolving]
